FAERS Safety Report 7079393-5 (Version None)
Quarter: 2010Q4

REPORT INFORMATION
  Report Type: 
  Country: None (occurrence: None)
  Receive Date: 20101102
  Receipt Date: 20101020
  Transmission Date: 20110411
  Serious: Yes (Hospitalization, Other)
  Sender: FDA-Public Use
  Company Number: US-AMGEN-USASP2010001152

PATIENT

DRUGS (1)
  1. ENBREL [Suspect]
     Indication: RHEUMATOID ARTHRITIS
     Dosage: UNK
     Dates: start: 20030912

REACTIONS (4)
  - CARCINOID TUMOUR PULMONARY [None]
  - FALL [None]
  - GAIT DISTURBANCE [None]
  - REHABILITATION THERAPY [None]
